FAERS Safety Report 9925896 (Version 1)
Quarter: 2014Q1

REPORT INFORMATION
  Report Type: Spontaneous
  Country: GB (occurrence: GB)
  Receive Date: 20140226
  Receipt Date: 20140226
  Transmission Date: 20141002
  Serious: Yes (Other)
  Sender: FDA-Public Use
  Company Number: GB-WATSON-2014-03122

PATIENT
  Sex: 0

DRUGS (2)
  1. CITALOPRAM (UNKNOWN) [Suspect]
     Indication: DEPRESSION
     Dosage: 10 MG, UNKNOWN
     Route: 048
     Dates: start: 20130801
  2. CITALOPRAM (UNKNOWN) [Suspect]
     Dosage: 20 MG, UNKNOWN
     Route: 048

REACTIONS (3)
  - Gingival bleeding [Unknown]
  - Somnolence [Unknown]
  - Drug intolerance [Unknown]
